FAERS Safety Report 4751253-1 (Version None)
Quarter: 2005Q3

REPORT INFORMATION
  Report Type: 
  Country: None (occurrence: None)
  Receive Date: 20050823
  Receipt Date: 20050823
  Transmission Date: 20060218
  Serious: No
  Sender: FDA-Public Use
  Company Number: None

PATIENT
  Age: 37 Year
  Sex: Male
  Weight: 95.709 kg

DRUGS (2)
  1. TOPAMAX [Suspect]
     Indication: ADVERSE DRUG REACTION
     Dosage: 2 PILLS ONCE A DAY WHEN EVENT    NCE A DAY   PO
     Route: 048
     Dates: start: 20050810, end: 20050820
  2. TOPAMAX [Suspect]
     Indication: VISION BLURRED
     Dosage: 2 PILLS ONCE A DAY WHEN EVENT    NCE A DAY   PO
     Route: 048
     Dates: start: 20050810, end: 20050820

REACTIONS (2)
  - PAIN [None]
  - VISION BLURRED [None]
